FAERS Safety Report 8055561-0 (Version None)
Quarter: 2012Q1

REPORT INFORMATION
  Report Type: 
  Country: None (occurrence: None)
  Receive Date: 20120119
  Receipt Date: 20120116
  Transmission Date: 20120608
  Serious: Yes (Hospitalization, Disabling, Other)
  Sender: FDA-Public Use
  Company Number: GB-SANOFI-AVENTIS-2011SA079270

PATIENT
  Age: 63 Year
  Sex: Male
  Weight: 112.8 kg

DRUGS (9)
  1. LANTUS [Suspect]
     Dosage: IN THE MORNING DOSE:40 UNIT(S)
     Route: 058
  2. IRBESARTAN [Concomitant]
     Indication: HYPERTENSION
     Route: 048
     Dates: start: 20080727
  3. LANTUS [Suspect]
     Dosage: DOSE:54 UNIT(S)
     Route: 058
  4. LANTUS [Suspect]
     Dosage: DOSE:58 UNIT(S)
     Route: 058
     Dates: start: 20071221
  5. ASPIRIN [Concomitant]
     Indication: HYPERTENSION
     Route: 048
  6. CETIRIZINE [Concomitant]
     Route: 048
     Dates: start: 19980709
  7. SIMVASTATIN [Concomitant]
     Indication: HYPERTENSION
     Route: 048
  8. BENDROFLUMETHIAZIDE [Concomitant]
     Indication: HYPERTENSION
     Route: 048
     Dates: start: 20081117
  9. OPTICLICK [Suspect]
     Indication: DEVICE THERAPY
     Dates: start: 20071227

REACTIONS (3)
  - CONVULSION [None]
  - EPILEPSY [None]
  - HYPOGLYCAEMIA [None]
